FAERS Safety Report 16256068 (Version 5)
Quarter: 2020Q2

REPORT INFORMATION
  Report Type: Spontaneous
  Country: US (occurrence: US)
  Receive Date: 20190430
  Receipt Date: 20200521
  Transmission Date: 20200713
  Serious: No
  Sender: FDA-Public Use
  Company Number: US-PFIZER INC-2019177832

PATIENT
  Age: 78 Year
  Sex: Female
  Weight: 61 kg

DRUGS (3)
  1. FASLODEX [Concomitant]
     Active Substance: FULVESTRANT
     Indication: HORMONE SUPPRESSION THERAPY
  2. IBRANCE [Suspect]
     Active Substance: PALBOCICLIB
     Indication: BREAST CANCER FEMALE
     Dosage: 100 MG, DAILY (TAKE 1 CAPSULE BY MOUTH DAILY)
     Route: 048
     Dates: start: 201903, end: 20190417
  3. FASLODEX [Concomitant]
     Active Substance: FULVESTRANT
     Indication: BREAST CANCER METASTATIC
     Dosage: UNK (DOSE INJECTION EVERY 2 WEEKS, DOSE UNKNOWN)
     Dates: start: 201903

REACTIONS (2)
  - Neoplasm progression [Unknown]
  - Platelet count decreased [Unknown]

NARRATIVE: CASE EVENT DATE: 20190417
